FAERS Safety Report 19927609 (Version 1)
Quarter: 2021Q4

REPORT INFORMATION
  Report Type: Report from Study
  Country: None (occurrence: IL)
  Receive Date: 20211007
  Receipt Date: 20211007
  Transmission Date: 20220303
  Serious: Yes (Hospitalization)
  Sender: FDA-Public Use
  Company Number: IL-ABBVIE-21K-082-3962879-00

PATIENT
  Age: 69 Year
  Sex: Female

DRUGS (32)
  1. VENETOCLAX [Suspect]
     Active Substance: VENETOCLAX
     Indication: Acute myeloid leukaemia
     Route: 048
     Dates: start: 20200318, end: 20200319
  2. VENETOCLAX [Suspect]
     Active Substance: VENETOCLAX
     Route: 048
     Dates: start: 20200320, end: 20200321
  3. VENETOCLAX [Suspect]
     Active Substance: VENETOCLAX
     Dosage: INTERRUPTION-DECISION OF THE DOCTOR
     Route: 048
     Dates: start: 20200322, end: 20201013
  4. VENETOCLAX [Suspect]
     Active Substance: VENETOCLAX
     Route: 048
     Dates: start: 20210120
  5. AZACITIDINE [Suspect]
     Active Substance: AZACITIDINE
     Indication: Acute myeloid leukaemia
     Dosage: CYCLE 1
     Route: 042
     Dates: start: 20200318, end: 20200322
  6. AZACITIDINE [Suspect]
     Active Substance: AZACITIDINE
     Dosage: CYCLE 2
     Route: 042
     Dates: start: 20200419, end: 20200427
  7. AZACITIDINE [Suspect]
     Active Substance: AZACITIDINE
     Dosage: CYCLE 3
     Route: 042
     Dates: start: 20200524, end: 20200601
  8. AZACITIDINE [Suspect]
     Active Substance: AZACITIDINE
     Dosage: CYCLE 4
     Route: 042
     Dates: start: 20200621, end: 20200628
  9. AZACITIDINE [Suspect]
     Active Substance: AZACITIDINE
     Dosage: CYCLE 5
     Route: 042
     Dates: start: 20200726, end: 20200803
  10. AZACITIDINE [Suspect]
     Active Substance: AZACITIDINE
     Dosage: CYCLE 6
     Route: 042
     Dates: start: 20200823, end: 20200831
  11. AZACITIDINE [Suspect]
     Active Substance: AZACITIDINE
     Dosage: CYCLE 7
     Route: 042
     Dates: start: 20201011, end: 20201019
  12. AZACITIDINE [Suspect]
     Active Substance: AZACITIDINE
     Dosage: CYCLE 8
     Route: 042
     Dates: start: 20201115, end: 20201123
  13. AZACITIDINE [Suspect]
     Active Substance: AZACITIDINE
     Dosage: CYCLE 9
     Route: 042
     Dates: start: 20201213, end: 20201218
  14. AZACITIDINE [Suspect]
     Active Substance: AZACITIDINE
     Dosage: CYCLE 10
     Route: 042
     Dates: start: 20210124, end: 20210201
  15. AZACITIDINE [Suspect]
     Active Substance: AZACITIDINE
     Dosage: CYCLE 11
     Route: 042
     Dates: start: 20210221, end: 202102
  16. AZACITIDINE [Suspect]
     Active Substance: AZACITIDINE
     Dosage: CYCLE 12
     Route: 042
     Dates: start: 20210321, end: 20210329
  17. AZACITIDINE [Suspect]
     Active Substance: AZACITIDINE
     Dosage: CYCLE 13
     Route: 042
     Dates: start: 20210406, end: 20210412
  18. AZACITIDINE [Suspect]
     Active Substance: AZACITIDINE
     Dosage: CYCLE 14
     Route: 042
     Dates: start: 20210509, end: 20210519
  19. AZACITIDINE [Suspect]
     Active Substance: AZACITIDINE
     Dosage: CYCLE 15
     Route: 042
     Dates: start: 20210711, end: 20210715
  20. AZACITIDINE [Suspect]
     Active Substance: AZACITIDINE
     Dosage: CYCLE 16
     Route: 042
     Dates: start: 20210808, end: 20210812
  21. AZACITIDINE [Suspect]
     Active Substance: AZACITIDINE
     Dosage: CYCLE 17
     Route: 042
     Dates: start: 20210912, end: 20210919
  22. LORIVAL [Concomitant]
     Indication: Surgery
     Dates: start: 20200323, end: 20200404
  23. STATOR [Concomitant]
     Indication: Prophylaxis
     Dates: start: 20200127, end: 20200323
  24. GLUCOPHAGE [Concomitant]
     Active Substance: METFORMIN HYDROCHLORIDE
     Indication: Product used for unknown indication
     Dosage: WHILE MONITORING KIDNEY FUNCTION .AT THE MOMENT CR
     Dates: start: 20200318, end: 20200401
  25. ALLOPURINOL [Concomitant]
     Active Substance: ALLOPURINOL
     Indication: Hyperuricaemia
     Dates: start: 20200310
  26. PFIZER-BIONTECH COVID-19 VACCINE [Concomitant]
     Active Substance: TOZINAMERAN
     Indication: COVID-19 immunisation
     Dosage: PFIZER
     Route: 030
     Dates: start: 20210311, end: 20210311
  27. PFIZER-BIONTECH COVID-19 VACCINE [Concomitant]
     Active Substance: TOZINAMERAN
     Dosage: PFIZER
     Route: 030
     Dates: start: 20210401, end: 20210401
  28. ENALAPRIL MALEATE [Concomitant]
     Active Substance: ENALAPRIL MALEATE
     Indication: Prophylaxis
     Dates: start: 20120226
  29. SETRON [Concomitant]
     Indication: Dyspepsia
     Dates: start: 20200707
  30. ACYCLO V [Concomitant]
     Indication: Infection prophylaxis
     Dates: start: 20150120
  31. ACYCLO V [Concomitant]
     Indication: Sleep disorder
  32. ASPIRIN [Concomitant]
     Active Substance: ASPIRIN
     Indication: Blood disorder
     Dates: start: 20110302

REACTIONS (2)
  - Syncope [Not Recovered/Not Resolved]
  - Headache [Recovered/Resolved]

NARRATIVE: CASE EVENT DATE: 20200419
